FAERS Safety Report 4872760-7 (Version None)
Quarter: 2006Q1

REPORT INFORMATION
  Report Type: 
  Country: None (occurrence: None)
  Receive Date: 20060103
  Receipt Date: 20051220
  Transmission Date: 20060701
  Serious: Yes (Other)
  Sender: FDA-Public Use
  Company Number: US200511002934

PATIENT
  Age: 84 Year
  Sex: Female
  Weight: 69.8 kg

DRUGS (5)
  1. FORTEO [Suspect]
     Indication: OSTEOPOROSIS
     Dosage: 20 UG,
     Dates: start: 20031101, end: 20051101
  2. FORTEO PEN (250MCG/ML) (FORTEO PEN 250MCG/ML (3ML)) PEN, DISPOSABLE [Concomitant]
  3. ZOCOR [Concomitant]
  4. PROTONIX [Concomitant]
  5. ALLEGRA [Concomitant]

REACTIONS (1)
  - CHRONIC LYMPHOCYTIC LEUKAEMIA [None]
